FAERS Safety Report 9079169 (Version 1)
Quarter: 2013Q1

REPORT INFORMATION
  Report Type: Report from Study
  Country: US (occurrence: US)
  Receive Date: 20130130
  Receipt Date: 20130130
  Transmission Date: 20140127
  Serious: No
  Sender: FDA-Public Use
  Company Number: US-ABBOTT-12P-163-0967637-00

PATIENT
  Age: 58 Year
  Sex: Female

DRUGS (7)
  1. HUMIRA 40 MG/0.8 ML PEN [Suspect]
     Indication: PSORIATIC ARTHROPATHY
     Dosage: INITIAL DOSE
     Dates: start: 20120812
  2. LISINOPRIL [Concomitant]
     Indication: HYPERTENSION
     Dosage: 10MG DAILY
  3. BABY ASPIRIN [Concomitant]
     Indication: PROPHYLAXIS
     Dosage: 81MG DAILY
  4. CALCIUM SUPPLEMENT [Concomitant]
     Indication: PROPHYLAXIS
  5. FLAX SEED OIL [Concomitant]
     Indication: PROPHYLAXIS
  6. BENADRYL [Concomitant]
     Indication: SEASONAL ALLERGY
  7. VITAMIN D3 [Concomitant]
     Indication: PROPHYLAXIS
     Dosage: DAILY

REACTIONS (1)
  - Injection site pain [Recovered/Resolved]
